FAERS Safety Report 8054801-1 (Version None)
Quarter: 2012Q1

REPORT INFORMATION
  Report Type: 
  Country: None (occurrence: None)
  Receive Date: 20120112
  Receipt Date: 20111229
  Transmission Date: 20120608
  Serious: Yes (Other)
  Sender: FDA-Public Use
  Company Number: VAL_00691_2012

PATIENT
  Age: 43 Year
  Sex: Female

DRUGS (5)
  1. CYCLOPHOSPHAMIDE [Concomitant]
  2. MASTICAL (MASTICAL-CALCIUM CARBONATE) [Suspect]
     Indication: PRODUCT USED FOR UNKNOWN INDICATION
     Dosage: (1 DF TID ORAL)
     Route: 048
     Dates: start: 20100101, end: 20111001
  3. AZATHIOPRINE [Concomitant]
  4. MYCOPHENOLATE MOFETIL [Concomitant]
  5. ROCALTROL [Suspect]
     Indication: PRODUCT USED FOR UNKNOWN INDICATION
     Dosage: (0.5 MG QD ORAL)
     Route: 048
     Dates: start: 20101005, end: 20111012

REACTIONS (4)
  - RENAL IMPAIRMENT [None]
  - HYPERCALCAEMIA [None]
  - RENAL FAILURE CHRONIC [None]
  - DRUG INTERACTION [None]
